FAERS Safety Report 6018519-9 (Version None)
Quarter: 2008Q4

REPORT INFORMATION
  Report Type: 
  Country: None (occurrence: None)
  Receive Date: 20081223
  Receipt Date: 20081211
  Transmission Date: 20090506
  Serious: Yes (Other)
  Sender: FDA-Public Use
  Company Number: US-PFIZER INC-2008156001

PATIENT
  Sex: Male

DRUGS (4)
  1. CHANTIX [Suspect]
     Indication: SMOKING CESSATION THERAPY
     Dosage: 1 MG, 2X/DAY
     Dates: start: 20080701
  2. ANTIHYPERTENSIVES [Concomitant]
     Indication: HYPERTENSION
     Dosage: UNK
  3. COUGH AND COLD PREPARATIONS [Concomitant]
     Dosage: UNK
  4. DIURETICS [Concomitant]
     Dosage: UNK

REACTIONS (5)
  - ABDOMINAL DISCOMFORT [None]
  - FEAR [None]
  - FEELING ABNORMAL [None]
  - HAEMATEMESIS [None]
  - MALAISE [None]
